FAERS Safety Report 7177669-4 (Version None)
Quarter: 2010Q4

REPORT INFORMATION
  Report Type: 
  Country: None (occurrence: None)
  Receive Date: 20101220
  Receipt Date: 20101213
  Transmission Date: 20110411
  Serious: Yes (Hospitalization)
  Sender: FDA-Public Use
  Company Number: US-B.I. PHARMACEUTICALS,INC./RIDGEFIELD-2010-BP-14409BP

PATIENT

DRUGS (4)
  1. PRADAXA [Suspect]
     Indication: ATRIAL FIBRILLATION
     Dosage: 300 MG
     Route: 048
     Dates: start: 20101210, end: 20101213
  2. DILTIAZEM [Concomitant]
     Indication: ATRIAL FIBRILLATION
  3. OXYBUTINEN [Concomitant]
     Indication: BLADDER DISORDER
  4. IMIPRAMINE [Concomitant]
     Indication: SLEEP DISORDER

REACTIONS (1)
  - RECTAL HAEMORRHAGE [None]
